FAERS Safety Report 23421471 (Version 1)
Quarter: 2024Q1

REPORT INFORMATION
  Report Type: Spontaneous
  Country: US (occurrence: US)
  Receive Date: 20240119
  Receipt Date: 20240119
  Transmission Date: 20240409
  Serious: Yes (Other)
  Sender: FDA-Public Use
  Company Number: US-SA-SAC20240116000470

PATIENT
  Age: 48 Year
  Sex: Female

DRUGS (1)
  1. CAPRELSA [Suspect]
     Active Substance: VANDETANIB
     Indication: Thyroid cancer
     Dosage: 300 MG, QD
     Route: 048

REACTIONS (10)
  - Seizure [Unknown]
  - Blood calcium decreased [Unknown]
  - Dysphemia [Unknown]
  - Heart rate increased [Unknown]
  - Bone pain [Unknown]
  - Vitamin D decreased [Unknown]
  - Muscular weakness [Unknown]
  - Fall [Unknown]
  - Head injury [Unknown]
  - Diarrhoea [Recovered/Resolved]

NARRATIVE: CASE EVENT DATE: 20240110
